FAERS Safety Report 6693164-0 (Version None)
Quarter: 2010Q2

REPORT INFORMATION
  Report Type: 
  Country: None (occurrence: None)
  Receive Date: 20100421
  Receipt Date: 20100421
  Transmission Date: 20101027
  Serious: Yes (Life-Threatening, Other)
  Sender: FDA-Public Use
  Company Number: None

PATIENT
  Age: 32 Year
  Sex: Male
  Weight: 68.9467 kg

DRUGS (2)
  1. CHANTIX [Suspect]
     Indication: SMOKING CESSATION THERAPY
     Dosage: 1 TABLET DAILY FOR 3 DAYS PO
     Route: 048
     Dates: start: 20100413, end: 20100415
  2. CHANTIX [Suspect]
     Indication: SMOKING CESSATION THERAPY
     Dosage: 1 TABLET DAILY FOR 3 DAYS PO
     Route: 048
     Dates: start: 20100416, end: 20100416

REACTIONS (6)
  - AGITATION [None]
  - ANXIETY [None]
  - DIZZINESS [None]
  - DYSPNOEA [None]
  - HEADACHE [None]
  - THINKING ABNORMAL [None]
